FAERS Safety Report 11254445 (Version 1)
Quarter: 2015Q3

REPORT INFORMATION
  Report Type: Spontaneous
  Country: US (occurrence: None)
  Receive Date: 20150708
  Receipt Date: 20150708
  Transmission Date: 20151125
  Serious: Yes (Other)
  Sender: FDA-Public Use
  Company Number: None

PATIENT
  Age: 72 Year
  Sex: Male

DRUGS (1)
  1. ELIQUIS [Suspect]
     Active Substance: APIXABAN
     Indication: ARRHYTHMIA
     Dosage: 1 PILL
     Route: 048
     Dates: start: 20150527, end: 20150616

REACTIONS (1)
  - Acute generalised exanthematous pustulosis [None]

NARRATIVE: CASE EVENT DATE: 20150602
